FAERS Safety Report 9461232 (Version 1)
Quarter: 2013Q3

REPORT INFORMATION
  Report Type: Spontaneous
  Country: US (occurrence: US)
  Receive Date: 20130816
  Receipt Date: 20130816
  Transmission Date: 20140515
  Serious: No
  Sender: FDA-Public Use
  Company Number: US-PFIZER INC-2013237109

PATIENT
  Age: 47 Year
  Sex: Male
  Weight: 86.17 kg

DRUGS (1)
  1. CHANTIX [Suspect]
     Indication: SMOKING CESSATION THERAPY
     Dosage: 0.5 MG, DAILY
     Route: 048
     Dates: start: 20130726

REACTIONS (4)
  - Nausea [Unknown]
  - Chest pain [Unknown]
  - Back pain [Unknown]
  - Malaise [Not Recovered/Not Resolved]
